FAERS Safety Report 19974802 (Version 1)
Quarter: 2021Q4

REPORT INFORMATION
  Report Type: Report from Study
  Country: DE (occurrence: DE)
  Receive Date: 20211020
  Receipt Date: 20211020
  Transmission Date: 20220303
  Serious: Yes (Life-Threatening)
  Sender: FDA-Public Use
  Company Number: DE-ROCHE-2937153

PATIENT
  Age: 66 Year
  Sex: Female

DRUGS (3)
  1. ATEZOLIZUMAB [Suspect]
     Active Substance: ATEZOLIZUMAB
     Indication: Ovarian cancer
     Route: 042
     Dates: start: 20210818, end: 20210818
  2. BEVACIZUMAB [Suspect]
     Active Substance: BEVACIZUMAB
     Indication: Ovarian cancer
     Dosage: INFUSION
     Route: 042
     Dates: start: 20210818, end: 20210818
  3. DOXORUBICIN [Concomitant]
     Active Substance: DOXORUBICIN
     Indication: Ovarian cancer
     Dosage: (DOSE // DAILY DOSE): 1 X 69.1 MILLIGRAM IN 28 DAY
     Route: 042
     Dates: start: 20210818

REACTIONS (2)
  - Escherichia sepsis [Unknown]
  - Subileus [Unknown]

NARRATIVE: CASE EVENT DATE: 20211007
